FAERS Safety Report 8778760 (Version 1)
Quarter: 2012Q4

REPORT INFORMATION
  Report Type: 
  Country: US (occurrence: US)
  Receive Date: 20120912
  Receipt Date: 20120912
  Transmission Date: 20130627
  Serious: No
  Sender: FDA-Public Use
  Company Number: US-PFIZER INC-2012221311

PATIENT
  Age: 67 Year
  Sex: Male
  Weight: 77.1 kg

DRUGS (5)
  1. VIAGRA [Suspect]
     Indication: ERECTILE DYSFUNCTION
     Dosage: 50 mg, Once
     Dates: start: 20120904
  2. CYMBALTA [Suspect]
     Indication: DEPRESSION
     Dosage: 90 mg, daily
  3. PRIMIDONE [Suspect]
     Indication: TREMOR
     Dosage: 200 mg, 1x/day
  4. GLIMEPIRIDE [Concomitant]
     Indication: BLOOD GLUCOSE INCREASED
     Dosage: 2 mg, daily
  5. BENAZEPRIL [Concomitant]
     Indication: HYPERTENSION
     Dosage: 20/12.5mg daily

REACTIONS (1)
  - Drug ineffective [Unknown]
